FAERS Safety Report 6504517-5 (Version None)
Quarter: 2009Q4

REPORT INFORMATION
  Report Type: 
  Country: None (occurrence: None)
  Receive Date: 20091215
  Receipt Date: 20091204
  Transmission Date: 20100525
  Serious: Yes (Death, Hospitalization)
  Sender: FDA-Public Use
  Company Number: 2009AC000059

PATIENT
  Age: 62 Year
  Sex: Male
  Weight: 92.0802 kg

DRUGS (36)
  1. DIGOXIN [Suspect]
     Dosage: 0.125 MG;QD;PO
     Route: 048
     Dates: start: 20071101
  2. DIGOXIN [Suspect]
     Dosage: 0.125 MG;1X;PO
     Route: 048
  3. AMBIEN [Concomitant]
  4. ASPIRIN [Concomitant]
  5. GABAPENTIN [Concomitant]
  6. NITROGLYCERIN [Concomitant]
  7. CLOTRIMAZOLE [Concomitant]
  8. LISINOPRIL [Concomitant]
  9. PREDNISONE [Concomitant]
  10. NEXIUM [Concomitant]
  11. HYDROCHLOROQUINE [Concomitant]
  12. FUROSEMIDE [Concomitant]
  13. PROVENTIL [Concomitant]
  14. ALPRAZOLAM [Concomitant]
  15. GABAPENTIN [Concomitant]
  16. BONIVA [Concomitant]
  17. FLUCONAZOLE [Concomitant]
  18. AMOXICILLIN [Concomitant]
  19. TEMAZEPAM [Concomitant]
  20. OMEPRAZOLE [Concomitant]
  21. ZOLPIDEM TARTRATE [Concomitant]
  22. HYOSCYAMINE [Concomitant]
  23. CARVEDILOL [Concomitant]
  24. COREG [Concomitant]
  25. VANCOMYCIN [Concomitant]
  26. ZOSYN [Concomitant]
  27. OXYGEN [Concomitant]
  28. BIAXIN [Concomitant]
  29. VICODIN [Concomitant]
  30. ASPIRIN [Concomitant]
  31. NORVASC [Concomitant]
  32. OMEPRAZOLE [Concomitant]
  33. NEURONTIN [Concomitant]
  34. NITROGLYCERIN [Concomitant]
  35. XANAX [Concomitant]
  36. COREG [Concomitant]

REACTIONS (47)
  - ABDOMINAL PAIN UPPER [None]
  - ANAEMIA [None]
  - ANAL SKIN TAGS [None]
  - ANTINUCLEAR ANTIBODY POSITIVE [None]
  - AORTIC VALVE CALCIFICATION [None]
  - ARTHRALGIA [None]
  - ATELECTASIS [None]
  - BONE PAIN [None]
  - BRONCHITIS [None]
  - BUNDLE BRANCH BLOCK [None]
  - CARDIAC FAILURE [None]
  - CARDIOMEGALY [None]
  - CARDIOMYOPATHY [None]
  - CHEST PAIN [None]
  - COLITIS [None]
  - COLONIC POLYP [None]
  - CORONARY ARTERY DISEASE [None]
  - COUGH [None]
  - DIARRHOEA [None]
  - DIVERTICULUM [None]
  - DIZZINESS [None]
  - DYSPNOEA [None]
  - DYSPNOEA EXERTIONAL [None]
  - ECONOMIC PROBLEM [None]
  - FEBRILE NEUTROPENIA [None]
  - HAEMORRHOIDS [None]
  - HYPERTENSION [None]
  - HYPOAESTHESIA [None]
  - HYPOTENSION [None]
  - INJURY [None]
  - MITRAL VALVE INCOMPETENCE [None]
  - MITRAL VALVE PROLAPSE [None]
  - MULTIPLE MYELOMA [None]
  - MUSCULOSKELETAL PAIN [None]
  - OBESITY [None]
  - PASSIVE SMOKING [None]
  - PLEURAL EFFUSION [None]
  - PROTEIN TOTAL INCREASED [None]
  - PYREXIA [None]
  - RECTAL HAEMORRHAGE [None]
  - SEPSIS [None]
  - SURGERY [None]
  - SYSTEMIC LUPUS ERYTHEMATOSUS [None]
  - TRICUSPID VALVE INCOMPETENCE [None]
  - UNEVALUABLE EVENT [None]
  - VENTRICULAR HYPERTROPHY [None]
  - WEIGHT DECREASED [None]
